FAERS Safety Report 4392879-7 (Version None)
Quarter: 2004Q3

REPORT INFORMATION
  Report Type: 
  Country: None (occurrence: None)
  Receive Date: 20040702
  Receipt Date: 20040531
  Transmission Date: 20050211
  Serious: Yes (Life-Threatening)
  Sender: FDA-Public Use
  Company Number: 200412066GDS

PATIENT
  Age: 46 Year
  Sex: Female

DRUGS (6)
  1. PROFLOX (MOXIFLOXACIN) [Suspect]
     Indication: TONSILLITIS
     Dosage: ORAL
     Route: 048
     Dates: start: 20040512
  2. 4-AMINO-3-HYDROXYBUTYRIC ACID + DIAZEPAM [Concomitant]
  3. MONTELUKAST SODIUM [Concomitant]
  4. IRBESARTAN [Concomitant]
  5. ALPRAZOLAM [Concomitant]
  6. FLUTICASONE W/SALMETEROL [Concomitant]

REACTIONS (5)
  - BLOOD PRESSURE INCREASED [None]
  - MALAISE [None]
  - OBSTRUCTIVE AIRWAYS DISORDER [None]
  - TACHYCARDIA [None]
  - TREMOR [None]
